FAERS Safety Report 8094876-7 (Version None)
Quarter: 2011Q4

REPORT INFORMATION
  Report Type: 
  Country: None (occurrence: None)
  Receive Date: 20111222
  Receipt Date: 20111121
  Transmission Date: 20120403
  Serious: Yes (Hospitalization)
  Sender: FDA-Public Use
  Company Number: UTC-011714

PATIENT
  Age: 13 Year
  Sex: Male
  Weight: 56.8 kg

DRUGS (6)
  1. SEROQUEL [Suspect]
  2. LAMICTAL [Suspect]
  3. TYVASO [Suspect]
     Indication: COR PULMONALE CHRONIC
     Dosage: 18-54 MICROGRAMS (4 IN 1 D), INHALATION, 18-54 MICROGRAMS (3 IN 1 D), INHALATION
     Route: 055
     Dates: start: 20110318
  4. LITHIUM CARBONATE [Suspect]
  5. LETAIRIS [Concomitant]
  6. ABILIFY [Suspect]

REACTIONS (4)
  - BIPOLAR DISORDER [None]
  - ASPERGER'S DISORDER [None]
  - DIZZINESS [None]
  - SYNCOPE [None]
